FAERS Safety Report 16787163 (Version 2)
Quarter: 2019Q4

REPORT INFORMATION
  Report Type: Spontaneous
  Country: US (occurrence: US)
  Receive Date: 20190909
  Receipt Date: 20191217
  Transmission Date: 20200122
  Serious: No
  Sender: FDA-Public Use
  Company Number: US-SA-2019SA249448

PATIENT
  Age: 17 Year
  Sex: Female
  Weight: 56.7 kg

DRUGS (7)
  1. ENSKYCE [Concomitant]
     Active Substance: DESOGESTREL\ETHINYL ESTRADIOL
  2. AUVI-Q [Concomitant]
     Active Substance: EPINEPHRINE
  3. CEFALEXINE [Concomitant]
     Active Substance: CEPHALEXIN
  4. DUPIXENT [Suspect]
     Active Substance: DUPILUMAB
     Indication: DERMATITIS ATOPIC
     Dosage: 300 MG, QOW
     Route: 058
     Dates: start: 20190730
  5. LORATADINE. [Concomitant]
     Active Substance: LORATADINE
  6. MUPIROCIN. [Concomitant]
     Active Substance: MUPIROCIN
  7. SULFAMETHOXAZOLE;TRIMETHOPRIM [Concomitant]
     Active Substance: SULFAMETHOXAZOLE\TRIMETHOPRIM

REACTIONS (2)
  - Rhinorrhoea [Unknown]
  - Alopecia [Unknown]

NARRATIVE: CASE EVENT DATE: 20190829
